FAERS Safety Report 24804897 (Version 1)
Quarter: 2025Q1

REPORT INFORMATION
  Report Type: Spontaneous
  Country: PL (occurrence: PL)
  Receive Date: 20250103
  Receipt Date: 20250103
  Transmission Date: 20250409
  Serious: Yes (Other)
  Sender: PFIZER
  Company Number: PL-PFIZER INC-PV202400168382

PATIENT
  Age: 18 Year
  Sex: Female

DRUGS (2)
  1. DOXORUBICIN HYDROCHLORIDE [Suspect]
     Active Substance: DOXORUBICIN HYDROCHLORIDE
     Indication: Epithelioid sarcoma metastatic
     Route: 042
     Dates: start: 2019
  2. DACARBAZINE [Suspect]
     Active Substance: DACARBAZINE
     Indication: Epithelioid sarcoma metastatic
     Route: 042
     Dates: start: 2019

REACTIONS (4)
  - Haematotoxicity [Unknown]
  - C-reactive protein increased [Unknown]
  - Serum ferritin increased [Unknown]
  - Neoplasm progression [Unknown]

NARRATIVE: CASE EVENT DATE: 20190101
